FAERS Safety Report 18296497 (Version 1)
Quarter: 2020Q3

REPORT INFORMATION
  Report Type: Spontaneous
  Country: US (occurrence: US)
  Receive Date: 20200922
  Receipt Date: 20200922
  Transmission Date: 20201103
  Serious: No
  Sender: FDA-Public Use
  Company Number: US-CELGENEUS-USA-20200904674

PATIENT
  Sex: Female

DRUGS (2)
  1. THALOMID [Suspect]
     Active Substance: THALIDOMIDE
     Indication: PLASMA CELL MYELOMA
     Dosage: 100 MILLIGRAM (BLISTER PACK)
     Route: 048
     Dates: start: 202006
  2. THALOMID [Suspect]
     Active Substance: THALIDOMIDE
     Indication: DERMATOMYOSITIS
     Dosage: 150 MILLIGRAM (BLISTER PACK)
     Route: 048
     Dates: start: 202004

REACTIONS (3)
  - Asthenia [Not Recovered/Not Resolved]
  - Balance disorder [Not Recovered/Not Resolved]
  - Rash [Not Recovered/Not Resolved]

NARRATIVE: CASE EVENT DATE: 2020
